FAERS Safety Report 4374043-0 (Version None)
Quarter: 2004Q2

REPORT INFORMATION
  Report Type: 
  Country: None (occurrence: None)
  Receive Date: 20040607
  Receipt Date: 20040317
  Transmission Date: 20050107
  Serious: Yes (Other)
  Sender: FDA-Public Use
  Company Number: 200413809GDDC

PATIENT
  Age: 87 Year
  Sex: Male
  Weight: 80 kg

DRUGS (6)
  1. NATRILIX [Suspect]
     Dosage: DOSE: 1 DF DAILY
     Route: 048
     Dates: start: 20020901, end: 20030501
  2. TEVETEN [Suspect]
     Indication: ESSENTIAL HYPERTENSION
     Route: 048
     Dates: start: 20020901, end: 20030501
  3. VOLTAREN [Suspect]
     Dosage: DOSE: 1 DF
  4. CARTIA [Concomitant]
  5. MINAX [Concomitant]
  6. LIPITOR [Concomitant]

REACTIONS (1)
  - RENAL FAILURE [None]
